FAERS Safety Report 4456772-3 (Version None)
Quarter: 2004Q3

REPORT INFORMATION
  Report Type: 
  Country: None (occurrence: None)
  Receive Date: 20040921
  Receipt Date: 20040907
  Transmission Date: 20050211
  Serious: Yes (Hospitalization)
  Sender: FDA-Public Use
  Company Number: 2004CG01760

PATIENT
  Age: 81 Year
  Sex: Male

DRUGS (14)
  1. PULMICORT [Suspect]
     Indication: BRONCHITIS
     Dates: start: 20040129, end: 20040216
  2. ALLOPURINOL [Suspect]
     Dosage: 1 DF QD PO
     Route: 048
     Dates: start: 20031201, end: 20040224
  3. LASILIX [Suspect]
     Indication: MYOCARDIAL ISCHAEMIA
     Dosage: 40 MG QD PO
     Route: 048
     Dates: end: 20040224
  4. PNEUMOREL [Suspect]
     Indication: BRONCHITIS
     Dates: start: 20040206, end: 20040220
  5. MUCOMYST [Suspect]
     Indication: BRONCHITIS
     Dates: start: 20040129, end: 20040216
  6. NAXY [Suspect]
     Indication: BRONCHITIS
     Dates: start: 20040206, end: 20040214
  7. CELESTENE [Suspect]
     Indication: BRONCHITIS
  8. BRONCHODUAL [Suspect]
     Dates: end: 20040224
  9. ZOCOR    ^MERCK FROSST^ [Suspect]
     Dosage: 40 MG QD
     Dates: end: 20040224
  10. NEO-MERCAZOLE TAB [Suspect]
     Dosage: 10 MG QD
  11. DILTIAZEM HYDROCHLORIDE [Suspect]
     Dosage: 200 MG QD
  12. NITRIDERM TTS [Suspect]
     Dosage: 5 MG QD TD
  13. LEVOTHYROX [Suspect]
     Dosage: 75  MG QD
  14. ASPIRIN [Suspect]
     Dosage: 75 MG QD

REACTIONS (6)
  - ACUTE GENERALISED EXANTHEMATOUS PUSTULOSIS [None]
  - BLOOD ALKALINE PHOSPHATASE INCREASED [None]
  - CD4/CD8 RATIO INCREASED [None]
  - DERMATITIS EXFOLIATIVE [None]
  - RENAL FAILURE [None]
  - SKIN TOXICITY [None]
